FAERS Safety Report 7757016-7 (Version None)
Quarter: 2011Q3

REPORT INFORMATION
  Report Type: 
  Country: None (occurrence: None)
  Receive Date: 20110916
  Receipt Date: 20110913
  Transmission Date: 20111222
  Serious: Yes (Other)
  Sender: FDA-Public Use
  Company Number: BR-PFIZER INC-2011216655

PATIENT
  Age: 32 Year
  Sex: Female
  Weight: 63 kg

DRUGS (3)
  1. LAMOTRIGINE [Concomitant]
     Indication: FEELING OF RELAXATION
     Dosage: ONE TABLET (UNKNOWN DOSE) AT NIGHT
     Dates: start: 20110101
  2. YAZ [Concomitant]
     Indication: CONTRACEPTION
     Dosage: ONE TABLET DAILY
  3. ZOLOFT [Suspect]
     Indication: ANXIETY DISORDER
     Dosage: 50 MG, 1X/DAY (IN THE MORNING)
     Route: 048
     Dates: start: 20110904

REACTIONS (1)
  - JOINT STIFFNESS [None]
